FAERS Safety Report 4562810-X (Version None)
Quarter: 2005Q1

REPORT INFORMATION
  Report Type: 
  Country: None (occurrence: None)
  Receive Date: 20050127
  Receipt Date: 20041203
  Transmission Date: 20050727
  Serious: Yes (Other)
  Sender: FDA-Public Use
  Company Number: FR-GLAXOSMITHKLINE-B0359110A

PATIENT
  Age: 15 Year
  Sex: Male
  Weight: 50 kg

DRUGS (2)
  1. LAMICTAL [Suspect]
     Route: 048
     Dates: start: 20040701, end: 20041203
  2. HOMEOPATHIC TREATMENT FOR RHINITIS [Concomitant]
     Dosage: 15DROP TWICE PER DAY
     Route: 048
     Dates: start: 20041115, end: 20041115

REACTIONS (6)
  - ANOREXIA [None]
  - HAEMATURIA [None]
  - PROTEINURIA [None]
  - RASH PRURITIC [None]
  - VOMITING [None]
  - WHITE BLOOD CELLS URINE POSITIVE [None]
